FAERS Safety Report 12179160 (Version 2)
Quarter: 2016Q1

REPORT INFORMATION
  Report Type: Spontaneous
  Country: PL (occurrence: PL)
  Receive Date: 20160315
  Receipt Date: 20160324
  Transmission Date: 20160526
  Serious: No
  Sender: FDA-Public Use
  Company Number: PL-LEO PHARMA-240686

PATIENT
  Sex: Female

DRUGS (1)
  1. PICATO [Suspect]
     Active Substance: INGENOL MEBUTATE
     Indication: ACTINIC KERATOSIS
     Dosage: 2 TUBES
     Route: 061
     Dates: start: 20160208, end: 20160208

REACTIONS (7)
  - Drug administration error [Unknown]
  - Application site discharge [Recovered/Resolved]
  - Application site pain [Recovered/Resolved]
  - Incorrect drug administration duration [Unknown]
  - Application site erythema [Recovered/Resolved]
  - Application site exfoliation [Recovered/Resolved]
  - Application site pain [Recovered/Resolved]

NARRATIVE: CASE EVENT DATE: 20160208
